FAERS Safety Report 25764534 (Version 1)
Quarter: 2025Q3

REPORT INFORMATION
  Report Type: Spontaneous
  Country: US (occurrence: US)
  Receive Date: 20250905
  Receipt Date: 20250905
  Transmission Date: 20251021
  Serious: No
  Sender: DOMPE FARMACEUTICI
  Company Number: US-FARMAPROD-202501-0040

PATIENT
  Sex: Male
  Weight: 111.13 kg

DRUGS (31)
  1. OXERVATE [Suspect]
     Active Substance: CENEGERMIN-BKBJ
     Indication: Neurotrophic keratopathy
     Route: 047
     Dates: start: 20241211
  2. OXERVATE [Suspect]
     Active Substance: CENEGERMIN-BKBJ
     Indication: Hypoaesthesia eye
     Dates: start: 20250430
  3. VITAMIN D3 [Concomitant]
     Active Substance: CHOLECALCIFEROL
  4. VITAMIN D3 [Concomitant]
     Active Substance: CHOLECALCIFEROL
  5. ZINC [Concomitant]
     Active Substance: ZINC
  6. ONE-A-DAY MEN^S 50 PLUS [Concomitant]
  7. ERYTHROMYCIN [Concomitant]
     Active Substance: ERYTHROMYCIN
  8. SYSTANE (HYPROMELLOSE 2910 (4000 MPA.S)) [Concomitant]
     Active Substance: HYPROMELLOSE 2910 (4000 MPA.S)
  9. DORZOLAMIDE HYDROCHLORIDE [Concomitant]
     Active Substance: DORZOLAMIDE HYDROCHLORIDE
  10. CORTICOTROPIN [Concomitant]
     Active Substance: CORTICOTROPIN
  11. PREDNISOLONE ACETATE [Concomitant]
     Active Substance: PREDNISOLONE ACETATE
  12. NITROGLYCERIN [Concomitant]
     Active Substance: NITROGLYCERIN
  13. ROSUVASTATIN CALCIUM [Concomitant]
     Active Substance: ROSUVASTATIN CALCIUM
  14. OMEPRAZOLE [Concomitant]
     Active Substance: OMEPRAZOLE
  15. PRED FORTE [Concomitant]
     Active Substance: PREDNISOLONE ACETATE
  16. TOBRAMYCIN [Concomitant]
     Active Substance: TOBRAMYCIN
  17. NEOMYCIN-POLYMYXIN-DEXAMETH [Concomitant]
  18. ROCKLATAN [Concomitant]
     Active Substance: LATANOPROST\NETARSUDIL MESYLATE
  19. ACETAZOLAMIDE [Concomitant]
     Active Substance: ACETAZOLAMIDE
  20. FLUTICASONE PROPIONATE [Concomitant]
     Active Substance: FLUTICASONE PROPIONATE
  21. METOPROLOL SUCCINATE [Concomitant]
     Active Substance: METOPROLOL SUCCINATE
  22. METOPROLOL TARTRATE [Concomitant]
     Active Substance: METOPROLOL TARTRATE
  23. ASPIRIN [Concomitant]
     Active Substance: ASPIRIN
  24. ACYCLOVIR [Concomitant]
     Active Substance: ACYCLOVIR
  25. COMBIGAN [Concomitant]
     Active Substance: BRIMONIDINE TARTRATE\TIMOLOL MALEATE
  26. LOTEMAX [Concomitant]
     Active Substance: LOTEPREDNOL ETABONATE
  27. LOTEMAX [Concomitant]
     Active Substance: LOTEPREDNOL ETABONATE
  28. OFLOXACIN [Concomitant]
     Active Substance: OFLOXACIN
  29. POLYMYXIN B SULFATE;TRIMETHOPRIM [Concomitant]
  30. VITAMINS [Concomitant]
     Active Substance: VITAMINS
  31. VALACYCLOVIR [Concomitant]
     Active Substance: VALACYCLOVIR HYDROCHLORIDE

REACTIONS (3)
  - Vision blurred [Not Recovered/Not Resolved]
  - Eye swelling [Unknown]
  - Ocular hyperaemia [Unknown]
